FAERS Safety Report 14114207 (Version 1)
Quarter: 2017Q4

REPORT INFORMATION
  Report Type: Report from Study
  Country: CN (occurrence: CN)
  Receive Date: 20171023
  Receipt Date: 20171023
  Transmission Date: 20180321
  Serious: Yes (Other)
  Sender: FDA-Public Use
  Company Number: CN-ASTELLAS-2017US042661

PATIENT

DRUGS (5)
  1. BEVACIZUMAB. [Suspect]
     Active Substance: BEVACIZUMAB
     Indication: COLORECTAL CANCER METASTATIC
     Dosage: 5 MG/KG (ON DAY 1)
     Route: 042
  2. ERLOTINIB [Suspect]
     Active Substance: ERLOTINIB
     Indication: COLORECTAL CANCER METASTATIC
     Dosage: UNK UNK, UNKNOWN FREQ.
     Route: 048
  3. LEUCOVORIN                         /00566701/ [Suspect]
     Active Substance: LEUCOVORIN
     Indication: COLORECTAL CANCER METASTATIC
     Dosage: 200 MG/M2, (2 HOURS ON DAY 1 + 2)
     Route: 042
  4. OXALIPLATIN. [Suspect]
     Active Substance: OXALIPLATIN
     Indication: COLORECTAL CANCER METASTATIC
     Dosage: 85 MG/M2, (FOR 2 HOUR ON DAY 1)
     Route: 042
  5. FLUOROURACIL. [Suspect]
     Active Substance: FLUOROURACIL
     Indication: COLORECTAL CANCER METASTATIC
     Dosage: 600 MG/M2, (40-HOUR ON DAYS 1 + 2)
     Route: 040

REACTIONS (11)
  - Haemorrhage [Unknown]
  - Thrombocytopenia [Unknown]
  - Proteinuria [Unknown]
  - Neuropathy peripheral [Unknown]
  - Vomiting [Unknown]
  - Diarrhoea [Unknown]
  - Anaemia [Unknown]
  - Rash [Unknown]
  - Fatigue [Unknown]
  - Cardiac failure [Unknown]
  - Asthenia [Unknown]
